FAERS Safety Report 10016166 (Version 2)
Quarter: 2014Q1

REPORT INFORMATION
  Report Type: Spontaneous
  Country: DK (occurrence: DK)
  Receive Date: 20140317
  Receipt Date: 20140326
  Transmission Date: 20141002
  Serious: Yes (Death, Life-Threatening, Hospitalization, Other)
  Sender: FDA-Public Use
  Company Number: DK-WATSON-2014-04573

PATIENT
  Age: 68 Year
  Sex: Male

DRUGS (34)
  1. RAMIPRIL (UNKNOWN) [Suspect]
     Indication: CARDIAC FAILURE
     Dosage: 2.5 MG, DAILY
     Route: 048
     Dates: start: 20130221
  2. RAMIPRIL (UNKNOWN) [Suspect]
     Dosage: 25 MG, BID
     Route: 065
     Dates: start: 20121029, end: 20130125
  3. WARFARIN (UNKNOWN) [Suspect]
     Indication: PRODUCT USED FOR UNKNOWN INDICATION
     Dosage: ON DEMAND
     Route: 065
     Dates: start: 20080403
  4. MAREVAN [Suspect]
     Indication: ATRIAL FIBRILLATION
     Dosage: 25 MG, PRN
     Route: 048
     Dates: start: 20130225, end: 20130320
  5. MAREVAN [Suspect]
     Dosage: UNK,  PRN
     Route: 048
     Dates: start: 20121012
  6. MAREVAN [Suspect]
     Dosage: ON DEMAND
     Route: 048
     Dates: start: 20120722
  7. SPIRON /00006201/ [Suspect]
     Indication: CARDIAC FAILURE
     Dosage: 25 MG, DAILY
     Route: 065
     Dates: start: 20120831, end: 20130125
  8. AMARYL [Concomitant]
     Indication: DIABETES MELLITUS
     Dosage: 3 MG, BID
     Route: 065
     Dates: start: 20000814
  9. ASPIRIN [Concomitant]
     Indication: ACUTE MYOCARDIAL INFARCTION
     Dosage: 75 MG, DAILY
     Route: 065
     Dates: start: 20000814, end: 20120620
  10. BURINEX [Concomitant]
     Indication: CARDIAC FAILURE
     Dosage: 1 MG, BID
     Route: 048
     Dates: start: 20120917
  11. BYETTA [Concomitant]
     Indication: DIABETES MELLITUS
     Dosage: 10 MG, BID
     Route: 058
     Dates: start: 20080221, end: 20130419
  12. CARVEDILOL [Concomitant]
     Indication: CARDIAC FAILURE
     Dosage: 12.5 MG, BID
     Route: 065
     Dates: start: 20130125
  13. CARVEDILOL [Concomitant]
     Dosage: 12.5 MG, BID
     Route: 048
     Dates: start: 20120708
  14. CITALOPRAM [Concomitant]
     Indication: DEPRESSION
     Dosage: 20 MG, DAILY
     Route: 048
     Dates: start: 20130219, end: 20130408
  15. DIGOXIN [Concomitant]
     Indication: VENTRICULAR TACHYCARDIA
     Dosage: 6.25 MG, DAILY
     Route: 065
     Dates: start: 20121115
  16. DIMITONE [Concomitant]
     Indication: MYOCARDIAL ISCHAEMIA
     Dosage: 12.5 MG, BID
     Route: 065
     Dates: start: 20080405, end: 20120619
  17. FUROSEMIDE [Concomitant]
     Indication: CARDIAC FAILURE
     Dosage: 80 MG, TID
     Route: 048
     Dates: start: 20120721, end: 20120806
  18. ISODUR [Concomitant]
     Indication: CARDIAC FAILURE
     Dosage: 30 MG, BID
     Route: 048
     Dates: start: 20120809
  19. ISODUR [Concomitant]
     Dosage: 100 MG, BID
     Route: 048
     Dates: start: 20120210, end: 20120808
  20. LASIX                              /00032601/ [Concomitant]
     Indication: CARDIAC FAILURE
     Dosage: 180 MG, DAILY
     Route: 065
     Dates: start: 20080406, end: 20120614
  21. METFORMIN [Concomitant]
     Indication: DIABETES MELLITUS
     Dosage: 1000 MG, BID
     Route: 048
     Dates: start: 20120710
  22. METFORMIN [Concomitant]
     Dosage: 1000 MG, BID
     Route: 048
     Dates: start: 20040714
  23. NORVASC [Concomitant]
     Indication: HYPERTENSION
     Dosage: 10 MG, DAILY
     Route: 065
     Dates: start: 20020527
  24. ODRIK [Concomitant]
     Indication: CARDIAC FAILURE
     Dosage: 0.5 MG, DAILY
     Route: 048
     Dates: start: 20120724
  25. PANTOPRAZOLE [Concomitant]
     Indication: GASTRIC ULCER
     Dosage: 20 MG, DAILY
     Route: 048
     Dates: start: 20130416
  26. PANTOPRAZOLE [Concomitant]
     Dosage: 20 MG, DAILY
     Route: 048
     Dates: start: 20121025, end: 20130415
  27. PANTOPRAZOLE [Concomitant]
     Dosage: 40 MG, BID
     Route: 048
     Dates: start: 20120620
  28. SELOZOK [Concomitant]
     Indication: CARDIAC FAILURE
     Dosage: 50 DF, UNKNOWN; 50 MEQ/KG, UNK
     Route: 065
     Dates: start: 20120719
  29. SELOZOK [Concomitant]
     Dosage: 50 X 25 MG
     Route: 048
     Dates: start: 20120619
  30. SPIRONOLACTONE [Concomitant]
     Indication: CARDIAC FAILURE
     Dosage: 12.5 MG, DAILY
     Route: 065
     Dates: start: 20120722, end: 20120830
  31. VENLAFAXIN [Concomitant]
     Indication: DEPRESSION
     Dosage: 75 MG, DAILY
     Route: 048
     Dates: start: 20130409, end: 20130419
  32. ZARATOR                            /01326101/ [Concomitant]
     Indication: HYPERCHOLESTEROLAEMIA
     Dosage: 20 MG, DAILY
     Route: 048
     Dates: start: 20120616, end: 20130419
  33. ZARATOR                            /01326101/ [Concomitant]
     Dosage: 40 MG, DAILY
     Route: 048
     Dates: start: 20030731
  34. ZAROXOLYN [Concomitant]
     Indication: CARDIAC FAILURE
     Dosage: 2.5 MG, UNK; ON DEMAND
     Route: 065
     Dates: start: 20120725

REACTIONS (15)
  - Acute myocardial infarction [Fatal]
  - Renal failure [Not Recovered/Not Resolved]
  - Hypotension [Recovered/Resolved]
  - Arteriosclerosis [Not Recovered/Not Resolved]
  - Haematemesis [Recovered/Resolved]
  - Cardiac failure [Recovering/Resolving]
  - Anaemia [Recovered/Resolved]
  - Aortic valve stenosis [Recovered/Resolved]
  - Abdominal pain upper [Recovered/Resolved]
  - International normalised ratio increased [Recovered/Resolved]
  - Coagulation factor increased [Recovered/Resolved]
  - Infection [Recovered/Resolved]
  - Pulmonary oedema [Recovered/Resolved]
  - Syncope [Not Recovered/Not Resolved]
  - Hyperkalaemia [Recovered/Resolved]
